FAERS Safety Report 11399377 (Version 1)
Quarter: 2015Q3

REPORT INFORMATION
  Report Type: Spontaneous
  Country: US (occurrence: None)
  Receive Date: 20150818
  Receipt Date: 20150818
  Transmission Date: 20151125
  Serious: No
  Sender: FDA-Public Use
  Company Number: None

PATIENT
  Age: 77 Year
  Sex: Female

DRUGS (14)
  1. ASPIRIN. [Concomitant]
     Active Substance: ASPIRIN
  2. ZINC [Concomitant]
     Active Substance: ZINC\ZINC CHLORIDE
  3. CALCIUM [Concomitant]
     Active Substance: CALCIUM
  4. GLIMEPIRIDE. [Concomitant]
     Active Substance: GLIMEPIRIDE
  5. TIMOLOL. [Concomitant]
     Active Substance: TIMOLOL
  6. VITAMIN E [Concomitant]
     Active Substance: .ALPHA.-TOCOPHEROL
  7. PIOGLITAZONE 30 MG [Suspect]
     Active Substance: PIOGLITAZONE
     Indication: DIABETES MELLITUS
     Route: 048
  8. NAPROXEN. [Concomitant]
     Active Substance: NAPROXEN
  9. GLUCOSAMINE/CHONDROITIN [Concomitant]
  10. SIMVASTATIN. [Concomitant]
     Active Substance: SIMVASTATIN
  11. VITAMIN B12 [Concomitant]
     Active Substance: CYANOCOBALAMIN
  12. LISINOPRIL. [Concomitant]
     Active Substance: LISINOPRIL
  13. MAGNESIUM [Concomitant]
     Active Substance: MAGNESIUM
  14. METFORMIN [Concomitant]
     Active Substance: METFORMIN HYDROCHLORIDE

REACTIONS (2)
  - Renal pain [None]
  - Back pain [None]
